FAERS Safety Report 9329527 (Version 1)
Quarter: 2013Q2

REPORT INFORMATION
  Report Type: Spontaneous
  Country: US (occurrence: US)
  Receive Date: 20130604
  Receipt Date: 20130604
  Transmission Date: 20140414
  Serious: No
  Sender: FDA-Public Use
  Company Number: US-SANOFI-AVENTIS-2012SA095330

PATIENT
  Age: 62 Year
  Sex: Female

DRUGS (3)
  1. LANTUS SOLOSTAR [Suspect]
     Indication: DIABETES MELLITUS
     Dosage: DOSE:15 UNIT(S)
     Route: 058
     Dates: start: 201209
  2. SOLOSTAR [Suspect]
     Indication: DIABETES MELLITUS
     Dates: start: 201209
  3. NOVOLOG [Suspect]
     Indication: DIABETES MELLITUS
     Dosage: 55 UNITS IN THE MORNING, 45 AT NIGHT.
     Route: 065

REACTIONS (5)
  - Thyroid disorder [Not Recovered/Not Resolved]
  - Overweight [Not Recovered/Not Resolved]
  - Hormone level abnormal [Not Recovered/Not Resolved]
  - Blood glucose increased [Not Recovered/Not Resolved]
  - Glycosylated haemoglobin increased [Not Recovered/Not Resolved]
